FAERS Safety Report 6441497-5 (Version None)
Quarter: 2009Q4

REPORT INFORMATION
  Report Type: 
  Country: None (occurrence: None)
  Receive Date: 20091112
  Receipt Date: 20091029
  Transmission Date: 20100525
  Serious: Yes (Hospitalization, Other)
  Sender: FDA-Public Use
  Company Number: 232489J09USA

PATIENT
  Age: 49 Year
  Sex: Female

DRUGS (4)
  1. REBIF [Suspect]
     Indication: MULTIPLE SCLEROSIS
     Dosage: 22 MCG, 3 IN 1 WEEKS, SUBCUTANEOUS
     Route: 058
     Dates: start: 20030120
  2. NEXIUM [Concomitant]
  3. BACLOFEN [Concomitant]
  4. AMANTADINE HCL [Concomitant]

REACTIONS (3)
  - CHOLECYSTITIS INFECTIVE [None]
  - OVARIAN CYST [None]
  - SCAR [None]
